FAERS Safety Report 11800155 (Version 1)
Quarter: 2015Q4

REPORT INFORMATION
  Report Type: Spontaneous
  Country: IL (occurrence: IL)
  Receive Date: 20151203
  Receipt Date: 20151203
  Transmission Date: 20160305
  Serious: Yes (Other)
  Sender: FDA-Public Use
  Company Number: IL-ABBVIE-15P-082-1509956-00

PATIENT
  Sex: Male

DRUGS (2)
  1. VIEKIRAX [Suspect]
     Active Substance: OMBITASVIR\PARITAPREVIR\RITONAVIR
     Indication: HEPATITIS C
     Route: 048
  2. EXVIERA [Suspect]
     Active Substance: DASABUVIR
     Indication: HEPATITIS C
     Route: 048

REACTIONS (4)
  - Hepatic failure [Unknown]
  - Nausea [Unknown]
  - Neoplasm [Unknown]
  - Ascites [Unknown]
